FAERS Safety Report 11184667 (Version 2)
Quarter: 2015Q2

REPORT INFORMATION
  Report Type: Spontaneous
  Country: US (occurrence: None)
  Receive Date: 20150528
  Receipt Date: 20150625
  Transmission Date: 20150821
  Serious: Yes (Other)
  Sender: FDA-Public Use
  Company Number: PHEH2015US003397

PATIENT
  Age: 65 Year
  Sex: Female
  Weight: 38 kg

DRUGS (2)
  1. FASLODEX [Suspect]
     Active Substance: FULVESTRANT
     Indication: BREAST CANCER
     Route: 030
     Dates: start: 201406
  2. AFINITOR [Suspect]
     Active Substance: EVEROLIMUS
     Indication: BREAST CANCER
     Route: 048
     Dates: start: 201406

REACTIONS (36)
  - Malignant neoplasm progression [None]
  - Fatigue [None]
  - Metastases to adrenals [None]
  - Pericardial effusion [None]
  - Hilar lymphadenopathy [None]
  - Hypoaesthesia [None]
  - Pyrexia [None]
  - Weight decreased [None]
  - Dermatitis [None]
  - Urinary tract disorder [None]
  - Dyspnoea exertional [None]
  - Haemorrhage [None]
  - Metastases to liver [None]
  - Malignant pleural effusion [None]
  - Muscular weakness [None]
  - Paraesthesia [None]
  - Musculoskeletal chest pain [None]
  - Diarrhoea [None]
  - Anaemia [None]
  - Arthralgia [None]
  - Oral pain [None]
  - Insomnia [None]
  - Headache [None]
  - Decreased appetite [None]
  - Lip ulceration [None]
  - Dizziness [None]
  - Metastases to bone [None]
  - Cyst [None]
  - Multiple sclerosis [None]
  - Anxiety [None]
  - Drug ineffective [None]
  - Constipation [None]
  - Malaise [None]
  - Hiatus hernia [None]
  - Nausea [None]
  - Rash [None]
